FAERS Safety Report 14736796 (Version 1)
Quarter: 2018Q2

REPORT INFORMATION
  Report Type: Spontaneous
  Country: US (occurrence: US)
  Receive Date: 20180409
  Receipt Date: 20180409
  Transmission Date: 20180711
  Serious: Yes (Other)
  Sender: FDA-Public Use
  Company Number: US-LEXICON PHARMACEUTICALS, INC-18-1606-00365

PATIENT
  Age: 70 Year
  Sex: Female
  Weight: 66.28 kg

DRUGS (21)
  1. TELOTRISTAT ETHYL [Suspect]
     Active Substance: TELOTRISTAT ETHYL
     Indication: CARCINOID SYNDROME
     Route: 048
     Dates: start: 20170411, end: 201711
  2. OXYCONTIN [Concomitant]
     Active Substance: OXYCODONE HYDROCHLORIDE
     Dosage: EXTENDED RELEASE
     Route: 048
     Dates: start: 20160929
  3. DIFLUNISAL. [Concomitant]
     Active Substance: DIFLUNISAL
     Dates: start: 20170502
  4. PREDNISONE. [Concomitant]
     Active Substance: PREDNISONE
     Dosage: 2 TABLETS PO 2 HOURS PRIOR TO ORAL SURGERY
     Route: 048
     Dates: start: 20170629
  5. IMODIUM [Concomitant]
     Active Substance: LOPERAMIDE HYDROCHLORIDE
     Dates: start: 20161027
  6. CALCIUM CARBONATE. [Concomitant]
     Active Substance: CALCIUM CARBONATE
  7. LASIX [Concomitant]
     Active Substance: FUROSEMIDE
     Dosage: 1.5 TABS IN AM DAILY, EXCEPT 2 TABS Q MON, WED, AND FRI AM
     Dates: start: 20170912
  8. VITAMIN D [Concomitant]
     Active Substance: CHOLECALCIFEROL
     Dates: start: 20171127
  9. PERTZYE [Concomitant]
     Active Substance: PANCRELIPASE AMYLASE\PANCRELIPASE LIPASE\PANCRELIPASE PROTEASE
     Dosage: 16,000 UNIT - 57,500 UNIT - 60,500 UNIT, DELAYED RELEASE. TAKE 2-3 CAPSULES WITH EACH MEAL
     Dates: start: 20161027
  10. K-DUR [Concomitant]
     Active Substance: POTASSIUM CHLORIDE
     Route: 048
     Dates: start: 20161027
  11. FERROUS SULFATE. [Concomitant]
     Active Substance: FERROUS SULFATE
  12. ASPIRIN EC [Concomitant]
     Active Substance: ASPIRIN
  13. FERROUS SULFATE. [Concomitant]
     Active Substance: FERROUS SULFATE
     Dates: start: 20170502
  14. SYNTHROID [Concomitant]
     Active Substance: LEVOTHYROXINE SODIUM
     Dates: start: 20171109, end: 2017
  15. SOMATULINE DEPOT [Concomitant]
     Active Substance: LANREOTIDE ACETATE
     Dosage: 120MG/0.5ML
     Route: 058
     Dates: start: 20170629
  16. SYNTHROID [Concomitant]
     Active Substance: LEVOTHYROXINE SODIUM
     Dates: start: 20171212
  17. OXYCODONE [Concomitant]
     Active Substance: OXYCODONE
     Indication: PAIN
     Dosage: TAKE ORALLY, 1-2 TABLET EVERY 4-6 HOURS PRN PAIN
     Route: 048
     Dates: start: 20170502
  18. HYDROXYCHLOROQUINE [Concomitant]
     Active Substance: HYDROXYCHLOROQUINE
  19. TELOTRISTAT ETHYL [Suspect]
     Active Substance: TELOTRISTAT ETHYL
     Route: 048
     Dates: start: 20171121
  20. KEFLEX [Concomitant]
     Active Substance: CEPHALEXIN
     Dosage: TAKE ORALLY 4 CAPSULES, 1 HOUR PRIOR TO INVASIVE DENTAL WORK, INCLUDING CLEANINGS
     Route: 048
     Dates: start: 20170608
  21. VITAMIN B12 [Concomitant]
     Active Substance: CYANOCOBALAMIN
     Dosage: EXTENDED RELEASE
     Route: 048
     Dates: start: 20161027

REACTIONS (2)
  - Haematoma [Unknown]
  - Atrial fibrillation [Unknown]

NARRATIVE: CASE EVENT DATE: 201801
